FAERS Safety Report 21675152 (Version 1)
Quarter: 2022Q4

REPORT INFORMATION
  Report Type: Spontaneous
  Country: US (occurrence: US)
  Receive Date: 20221202
  Receipt Date: 20221202
  Transmission Date: 20230113
  Serious: No
  Sender: FDA-Public Use
  Company Number: US-TEVA-2022-US-2829925

PATIENT
  Age: 77 Year
  Sex: Female

DRUGS (1)
  1. ESTRADIOL [Suspect]
     Active Substance: ESTRADIOL
     Indication: Vaginal infection
     Dosage: STRENGTH: 10 MCG

REACTIONS (8)
  - Stomatitis [Unknown]
  - Oral discomfort [Unknown]
  - Vaginal infection [Unknown]
  - Burning mouth syndrome [Unknown]
  - Candida infection [Unknown]
  - Oesophageal disorder [Unknown]
  - Inappropriate schedule of product administration [Unknown]
  - Inappropriate schedule of product administration [Unknown]

NARRATIVE: CASE EVENT DATE: 20220101
